FAERS Safety Report 16237750 (Version 1)
Quarter: 2019Q2

REPORT INFORMATION
  Report Type: Report from Study
  Country: US (occurrence: US)
  Receive Date: 20190425
  Receipt Date: 20190425
  Transmission Date: 20190711
  Serious: Yes (Other)
  Sender: FDA-Public Use
  Company Number: US-GILEAD-2019-0403785

PATIENT
  Age: 20 Year
  Sex: Male

DRUGS (1)
  1. AMBRISENTAN [Suspect]
     Active Substance: AMBRISENTAN
     Indication: PRODUCT USED FOR UNKNOWN INDICATION
     Dosage: 10 MG, QD
     Route: 065
     Dates: start: 20190222

REACTIONS (5)
  - Intracardiac thrombus [Unknown]
  - Cerebral thrombosis [Unknown]
  - Sickle cell disease [Not Recovered/Not Resolved]
  - Pulmonary thrombosis [Unknown]
  - Weight increased [Unknown]
